FAERS Safety Report 10421053 (Version 1)
Quarter: 2014Q3

REPORT INFORMATION
  Report Type: Spontaneous
  Country: US (occurrence: None)
  Receive Date: 20140722
  Receipt Date: 20140722
  Transmission Date: 20150326
  Serious: No
  Sender: FDA-Public Use
  Company Number: 163-10004-14063500

PATIENT
  Age: 56 Year
  Sex: Female
  Weight: 112.95 kg

DRUGS (13)
  1. SPIRONOLACTONE. [Concomitant]
     Active Substance: SPIRONOLACTONE
  2. OXYCODON (OXYCODONE HYDROCHLORIDE) [Concomitant]
  3. VICTOZA (LIRAGLUTID) [Concomitant]
  4. BABY ASPIRIN (ACETYLSALICYLIC ACID) [Concomitant]
     Active Substance: ASPIRIN
  5. BACLOFEN. [Concomitant]
     Active Substance: BACLOFEN
  6. OTEZLA [Suspect]
     Active Substance: APREMILAST
     Indication: PSORIATIC ARTHROPATHY
     Route: 048
     Dates: start: 20140514
  7. MOBIC [Concomitant]
     Active Substance: MELOXICAM
  8. OXYBUTYNIN [Concomitant]
     Active Substance: OXYBUTYNIN
  9. DULOXETINE [Concomitant]
     Active Substance: DULOXETINE
  10. OTREXUP (OTHER THERAPEUTIC PRODUCTS) [Concomitant]
  11. LIPITOR [Concomitant]
     Active Substance: ATORVASTATIN CALCIUM
  12. METOLAZONE. [Concomitant]
     Active Substance: METOLAZONE
  13. OMEPRAZOLE. [Concomitant]
     Active Substance: OMEPRAZOLE

REACTIONS (1)
  - Headache [None]

NARRATIVE: CASE EVENT DATE: 20140514
